FAERS Safety Report 21195337 (Version 2)
Quarter: 2022Q3

REPORT INFORMATION
  Report Type: Spontaneous
  Country: IT (occurrence: IT)
  Receive Date: 20220810
  Receipt Date: 20220818
  Transmission Date: 20221027
  Serious: Yes (Hospitalization, Other)
  Sender: FDA-Public Use
  Company Number: IT-STADA-255011

PATIENT
  Age: 4 Year
  Weight: 2.6 kg

DRUGS (14)
  1. DIAZEPAM [Suspect]
     Active Substance: DIAZEPAM
     Indication: Intentional product misuse to child
  2. CANNABIDIOL [Suspect]
     Active Substance: CANNABIDIOL
     Indication: Psychomotor hyperactivity
     Dosage: OIL; 4 DROPS PER DAY FOR THE LAST 2 MONTHS.
  3. CAFFEINE [Suspect]
     Active Substance: CAFFEINE
     Indication: Intentional product misuse to child
  4. TEMAZEPAM [Suspect]
     Active Substance: TEMAZEPAM
     Indication: Intentional product misuse to child
  5. ACYCLOVIR [Suspect]
     Active Substance: ACYCLOVIR
     Indication: Encephalitis
  6. NORDAZEPAM [Suspect]
     Active Substance: NORDAZEPAM
     Indication: Intentional product misuse to child
  7. DOXYLAMINE [Suspect]
     Active Substance: DOXYLAMINE
     Indication: Intentional product misuse to child
  8. CHLORPHENIRAMINE [Concomitant]
     Active Substance: CHLORPHENIRAMINE
     Indication: Product used for unknown indication
  9. CARBAMAZEPINE [Concomitant]
     Active Substance: CARBAMAZEPINE
     Indication: Encephalitis
     Route: 050
  10. ACETAMINOPHEN [Concomitant]
     Active Substance: ACETAMINOPHEN
     Indication: Product used for unknown indication
  11. LIDOCAINE [Concomitant]
     Active Substance: LIDOCAINE
     Indication: Product used for unknown indication
  12. KETAMINE [Concomitant]
     Active Substance: KETAMINE
     Indication: Product used for unknown indication
  13. RISPERIDONE [Concomitant]
     Active Substance: RISPERIDONE
     Indication: Psychiatric symptom
     Dosage: LOW DOSAGE OF RISPERIDONE
  14. RITUXIMAB [Concomitant]
     Active Substance: RITUXIMAB
     Indication: Encephalitis
     Dosage: SECOND LINE

REACTIONS (3)
  - Drug ineffective [Unknown]
  - Intentional product misuse to child [Unknown]
  - Behaviour disorder [Unknown]
